FAERS Safety Report 4678602-7 (Version None)
Quarter: 2005Q2

REPORT INFORMATION
  Report Type: 
  Country: None (occurrence: None)
  Receive Date: 20050527
  Receipt Date: 20050518
  Transmission Date: 20051028
  Serious: Yes (Other)
  Sender: FDA-Public Use
  Company Number: 2005-03-0136

PATIENT
  Age: 46 Year
  Sex: Male
  Weight: 74 kg

DRUGS (5)
  1. INTRON A [Suspect]
     Indication: HEPATITIS C
     Dosage: SEE IMAGE
     Route: 030
     Dates: start: 20041017, end: 20041030
  2. INTRON A [Suspect]
     Indication: HEPATITIS C
     Dosage: SEE IMAGE
     Route: 030
     Dates: start: 20041017, end: 20050227
  3. INTRON A [Suspect]
     Indication: HEPATITIS C
     Dosage: SEE IMAGE
     Route: 030
     Dates: start: 20041102, end: 20050227
  4. REBETOL [Suspect]
     Indication: HEPATITIS C
     Dosage: 800 MG ORAL
     Route: 048
     Dates: start: 20041017, end: 20050227
  5. LOXONIN [Concomitant]

REACTIONS (4)
  - CERVICAL SPINAL STENOSIS [None]
  - HERNIA [None]
  - HYPOAESTHESIA [None]
  - NECK PAIN [None]
